FAERS Safety Report 4952697-5 (Version None)
Quarter: 2006Q1

REPORT INFORMATION
  Report Type: 
  Country: None (occurrence: None)
  Receive Date: 20060321
  Receipt Date: 20060203
  Transmission Date: 20060701
  Serious: Yes (Other)
  Sender: FDA-Public Use
  Company Number: FRPFM-S-20060067

PATIENT
  Age: 82 Year
  Sex: Male

DRUGS (2)
  1. NAVELBINE [Suspect]
     Indication: METASTASES TO LUNG
  2. ALCOHOL DRESSING [Concomitant]

REACTIONS (3)
  - BURNING SENSATION [None]
  - BURNS SECOND DEGREE [None]
  - INFUSION SITE ERYTHEMA [None]
